FAERS Safety Report 8542623-4 (Version None)
Quarter: 2012Q3

REPORT INFORMATION
  Report Type: 
  Country: None (occurrence: None)
  Receive Date: 20120726
  Receipt Date: 20120720
  Transmission Date: 20120928
  Serious: No
  Sender: FDA-Public Use
  Company Number: US-B.I. PHARMACEUTICALS,INC./RIDGEFIELD-2012-BP-16505BP

PATIENT
  Age: 50 Year
  Sex: Male

DRUGS (3)
  1. LIPROZIDE [Concomitant]
  2. TRADJENTA [Suspect]
  3. METFORMIN HYDROCHLORIDE [Concomitant]

REACTIONS (1)
  - BLOOD GLUCOSE INCREASED [None]
